FAERS Safety Report 4907066-0 (Version None)
Quarter: 2006Q1

REPORT INFORMATION
  Report Type: 
  Country: None (occurrence: None)
  Receive Date: 20060207
  Receipt Date: 20060123
  Transmission Date: 20060701
  Serious: Yes (Other)
  Sender: FDA-Public Use
  Company Number: US-2006-001457

PATIENT
  Age: 47 Year
  Sex: Female

DRUGS (1)
  1. BETASERON (INTERFERON BETA-1B) INJECTIO, 250?G [Suspect]
     Indication: MULTIPLE SCLEROSIS
     Dosage: 8 MIU, EVERY 2D, SUBCUTANEOUS
     Route: 058
     Dates: start: 20051107

REACTIONS (2)
  - DIARRHOEA [None]
  - WEIGHT DECREASED [None]
